FAERS Safety Report 5079777-0 (Version None)
Quarter: 2006Q3

REPORT INFORMATION
  Report Type: 
  Country: None (occurrence: None)
  Receive Date: 20060815
  Receipt Date: 20060612
  Transmission Date: 20061208
  Serious: Yes (Other)
  Sender: FDA-Public Use
  Company Number: US-BAYER-200614217BWH

PATIENT
  Age: 65 Year
  Sex: Male
  Weight: 104 kg

DRUGS (1)
  1. SORAFENIB [Suspect]
     Indication: LEIOMYOSARCOMA
     Dosage: TOTAL DAILY DOSE: 800 MG  UNIT DOSE: 200 MG
     Route: 048
     Dates: start: 20060210, end: 20060526

REACTIONS (7)
  - CATARACT [None]
  - PHOTOPSIA [None]
  - RETINAL DETACHMENT [None]
  - RETINAL TEAR [None]
  - VITREOUS DETACHMENT [None]
  - VITREOUS FLOATERS [None]
  - VITREOUS HAEMORRHAGE [None]
